FAERS Safety Report 19103425 (Version 1)
Quarter: 2021Q2

REPORT INFORMATION
  Report Type: Spontaneous
  Country: US (occurrence: US)
  Receive Date: 20210407
  Receipt Date: 20210407
  Transmission Date: 20210717
  Serious: Yes (Other)
  Sender: FDA-Public Use
  Company Number: US-ALLERGAN-2113896US

PATIENT
  Sex: Female

DRUGS (3)
  1. VITAMINS [Concomitant]
     Active Substance: VITAMINS
  2. VRAYLAR [Suspect]
     Active Substance: CARIPRAZINE
     Indication: BIPOLAR I DISORDER
     Dosage: 3 MG
     Route: 048
     Dates: start: 20210224, end: 20210301
  3. VRAYLAR [Suspect]
     Active Substance: CARIPRAZINE
     Dosage: 1.5 MG
     Route: 048
     Dates: start: 20210218, end: 20210224

REACTIONS (12)
  - Dizziness [Not Recovered/Not Resolved]
  - Insomnia [Recovered/Resolved]
  - Tremor [Recovered/Resolved]
  - Muscular weakness [Recovering/Resolving]
  - Reduced facial expression [Recovered/Resolved]
  - Akathisia [Recovered/Resolved]
  - Mania [Recovered/Resolved]
  - Vision blurred [Not Recovered/Not Resolved]
  - Drooling [Recovered/Resolved]
  - Nausea [Not Recovered/Not Resolved]
  - Extrapyramidal disorder [Recovered/Resolved]
  - Dysuria [Recovered/Resolved]

NARRATIVE: CASE EVENT DATE: 20210226
